FAERS Safety Report 5413093-X (Version None)
Quarter: 2007Q3

REPORT INFORMATION
  Report Type: 
  Country: None (occurrence: None)
  Receive Date: 20070809
  Receipt Date: 20070727
  Transmission Date: 20080115
  Serious: Yes (Death, Life-Threatening, Hospitalization, Disabling, Other)
  Sender: FDA-Public Use
  Company Number: A-CH2007-17015

PATIENT
  Age: 67 Year
  Sex: Female
  Weight: 87 kg

DRUGS (6)
  1. TRACLEER [Suspect]
     Indication: PULMONARY HYPERTENSION
     Dosage: 250 MG, BID, ORAL; 62.5 MG, BID, ORAL; 125 MG,BID,ORAL; 125MG, BID; 93.75 MG, BID, ORAL
     Route: 048
     Dates: start: 20050803, end: 20050922
  2. TRACLEER [Suspect]
     Indication: PULMONARY HYPERTENSION
     Dosage: 250 MG, BID, ORAL; 62.5 MG, BID, ORAL; 125 MG,BID,ORAL; 125MG, BID; 93.75 MG, BID, ORAL
     Route: 048
     Dates: start: 20060312, end: 20061214
  3. TRACLEER [Suspect]
     Indication: PULMONARY HYPERTENSION
     Dosage: 250 MG, BID, ORAL; 62.5 MG, BID, ORAL; 125 MG,BID,ORAL; 125MG, BID; 93.75 MG, BID, ORAL
     Route: 048
     Dates: start: 20061215, end: 20070315
  4. TRACLEER [Suspect]
     Indication: PULMONARY HYPERTENSION
     Dosage: 250 MG, BID, ORAL; 62.5 MG, BID, ORAL; 125 MG,BID,ORAL; 125MG, BID; 93.75 MG, BID, ORAL
     Route: 048
     Dates: start: 20070316, end: 20070702
  5. TRACLEER [Suspect]
     Indication: PULMONARY HYPERTENSION
     Dosage: 250 MG, BID, ORAL; 62.5 MG, BID, ORAL; 125 MG,BID,ORAL; 125MG, BID; 93.75 MG, BID, ORAL
     Route: 048
     Dates: start: 20050923
  6. SILDENAFIL CITRATE [Concomitant]

REACTIONS (7)
  - ALANINE AMINOTRANSFERASE INCREASED [None]
  - ASPARTATE AMINOTRANSFERASE INCREASED [None]
  - BLOOD ALKALINE PHOSPHATASE INCREASED [None]
  - BLOOD BILIRUBIN INCREASED [None]
  - MULTI-ORGAN FAILURE [None]
  - PULMONARY HYPERTENSION [None]
  - RIGHT VENTRICULAR FAILURE [None]
